FAERS Safety Report 7118072-2 (Version None)
Quarter: 2010Q4

REPORT INFORMATION
  Report Type: 
  Country: None (occurrence: None)
  Receive Date: 20101123
  Receipt Date: 20101101
  Transmission Date: 20110411
  Serious: Yes (Hospitalization)
  Sender: FDA-Public Use
  Company Number: US-BAYER-201033520NA

PATIENT
  Age: 16 Year
  Sex: Female
  Weight: 73 kg

DRUGS (12)
  1. YAZ [Suspect]
     Indication: PREMENSTRUAL SYNDROME
     Route: 048
     Dates: start: 20061201, end: 20090801
  2. YASMIN [Suspect]
     Indication: PRODUCT USED FOR UNKNOWN INDICATION
     Route: 048
  3. AZITHROMYCIN [Concomitant]
     Indication: MALAISE
     Route: 048
     Dates: start: 20070722
  4. ASCORBIC ACID [Concomitant]
  5. PROTONIX [Concomitant]
     Route: 048
     Dates: start: 20070116
  6. DOXYCYCLINE HYCLATE [Concomitant]
     Dosage: TOTAL DAILY DOSE: 200 MG  UNIT DOSE: 100 MG
     Dates: start: 20070922
  7. PROAIR HFA [Concomitant]
     Dosage: 2 PUFFS
     Route: 055
     Dates: start: 20070925
  8. ALBUTEROL [Concomitant]
     Indication: ASTHMA
  9. IBUPROFEN [Concomitant]
     Route: 048
  10. AMBIEN [Concomitant]
  11. CLARITIN [Concomitant]
  12. SUDAFED 12 HOUR [Concomitant]

REACTIONS (7)
  - ABDOMINAL PAIN UPPER [None]
  - BILIARY DYSKINESIA [None]
  - CHOLECYSTITIS CHRONIC [None]
  - CHOLELITHIASIS [None]
  - DYSPEPSIA [None]
  - NAUSEA [None]
  - PROCEDURAL PAIN [None]
